FAERS Safety Report 26068311 (Version 3)
Quarter: 2025Q4

REPORT INFORMATION
  Report Type: Report from Study
  Country: JP (occurrence: JP)
  Receive Date: 20251120
  Receipt Date: 20251203
  Transmission Date: 20260118
  Serious: Yes (Death)
  Sender: JOHNSON AND JOHNSON
  Company Number: JP-JNJFOC-20251165188

PATIENT
  Age: 72 Year
  Sex: Female
  Weight: 45.7 kg

DRUGS (56)
  1. DARATUMUMAB [Suspect]
     Active Substance: DARATUMUMAB
     Indication: Primary amyloidosis
     Dosage: DOSE UNKNOWN
     Route: 058
     Dates: start: 20240920, end: 20240920
  2. DARATUMUMAB [Suspect]
     Active Substance: DARATUMUMAB
     Route: 058
     Dates: start: 20240927, end: 20240927
  3. DARATUMUMAB [Suspect]
     Active Substance: DARATUMUMAB
     Route: 058
     Dates: start: 20241004, end: 20241004
  4. DARATUMUMAB [Suspect]
     Active Substance: DARATUMUMAB
     Route: 058
     Dates: start: 20241011, end: 20241011
  5. DARATUMUMAB [Suspect]
     Active Substance: DARATUMUMAB
     Route: 058
     Dates: start: 20241018, end: 20241018
  6. DARATUMUMAB [Suspect]
     Active Substance: DARATUMUMAB
     Route: 058
     Dates: start: 20241025, end: 20241025
  7. DARATUMUMAB [Suspect]
     Active Substance: DARATUMUMAB
     Route: 058
     Dates: start: 20241101, end: 20241101
  8. DARATUMUMAB [Suspect]
     Active Substance: DARATUMUMAB
     Route: 058
     Dates: start: 20241108, end: 20241108
  9. DARATUMUMAB [Suspect]
     Active Substance: DARATUMUMAB
     Route: 058
     Dates: start: 20241115, end: 20241115
  10. DARATUMUMAB [Suspect]
     Active Substance: DARATUMUMAB
     Route: 058
     Dates: start: 20241122, end: 20241122
  11. DARATUMUMAB [Suspect]
     Active Substance: DARATUMUMAB
     Route: 058
     Dates: start: 20241129, end: 20241129
  12. DARATUMUMAB [Suspect]
     Active Substance: DARATUMUMAB
     Route: 058
     Dates: start: 20241213, end: 20241213
  13. DARATUMUMAB [Suspect]
     Active Substance: DARATUMUMAB
     Route: 058
     Dates: start: 20241227, end: 20241227
  14. DARATUMUMAB [Suspect]
     Active Substance: DARATUMUMAB
     Route: 058
     Dates: start: 20250110, end: 20250110
  15. DARATUMUMAB [Suspect]
     Active Substance: DARATUMUMAB
     Route: 058
     Dates: start: 20250124, end: 20250124
  16. DARATUMUMAB [Suspect]
     Active Substance: DARATUMUMAB
     Route: 058
     Dates: start: 20250207, end: 20250207
  17. DARATUMUMAB [Suspect]
     Active Substance: DARATUMUMAB
     Route: 058
     Dates: start: 20250307, end: 20250307
  18. DARATUMUMAB [Suspect]
     Active Substance: DARATUMUMAB
     Route: 058
     Dates: start: 20250404, end: 20250404
  19. DARATUMUMAB [Suspect]
     Active Substance: DARATUMUMAB
     Dosage: THERAPY START DATE- 10-JAN-2025?THERAPY END DATE- 10-JAN-2025
     Route: 058
  20. DARATUMUMAB [Suspect]
     Active Substance: DARATUMUMAB
     Dosage: THERAPY START DATE- 24-JAN-2025?THERAPY END DATE- 24-JAN-2025
     Route: 058
  21. DARATUMUMAB [Suspect]
     Active Substance: DARATUMUMAB
     Dosage: THERAPY START DATE- 07-FEB-2025?THERAPY END DATE- 07-FEB-2025
     Route: 058
  22. DARATUMUMAB [Suspect]
     Active Substance: DARATUMUMAB
     Dosage: THERAPY START DATE- 07-MAR-2025?THERAPY END DATE- 07-MAR-2025
     Route: 058
  23. DARATUMUMAB [Suspect]
     Active Substance: DARATUMUMAB
     Dosage: THERAPY START DATE: 04-APR-2025?THERAPY END DATE: 04-APR-2025
     Route: 058
  24. VELCADE [Suspect]
     Active Substance: BORTEZOMIB
     Indication: Primary amyloidosis
     Route: 065
     Dates: start: 20240920, end: 20240920
  25. VELCADE [Suspect]
     Active Substance: BORTEZOMIB
     Route: 065
     Dates: start: 20240927, end: 20240927
  26. VELCADE [Suspect]
     Active Substance: BORTEZOMIB
     Route: 065
     Dates: start: 20241004, end: 20241004
  27. VELCADE [Suspect]
     Active Substance: BORTEZOMIB
     Route: 065
     Dates: start: 20241011, end: 20241011
  28. VELCADE [Suspect]
     Active Substance: BORTEZOMIB
     Route: 065
     Dates: start: 20241018, end: 20241018
  29. VELCADE [Suspect]
     Active Substance: BORTEZOMIB
     Route: 065
     Dates: start: 20241025, end: 20241025
  30. VELCADE [Suspect]
     Active Substance: BORTEZOMIB
     Route: 065
     Dates: start: 20241101, end: 20241101
  31. VELCADE [Suspect]
     Active Substance: BORTEZOMIB
     Route: 065
     Dates: start: 20241108, end: 20241108
  32. VELCADE [Suspect]
     Active Substance: BORTEZOMIB
     Route: 065
     Dates: start: 20241115, end: 20241115
  33. VELCADE [Suspect]
     Active Substance: BORTEZOMIB
     Route: 065
     Dates: start: 20241122, end: 20241122
  34. VELCADE [Suspect]
     Active Substance: BORTEZOMIB
     Route: 065
     Dates: start: 20241129, end: 20241129
  35. VELCADE [Suspect]
     Active Substance: BORTEZOMIB
     Route: 065
     Dates: start: 20241206, end: 20241206
  36. VELCADE [Suspect]
     Active Substance: BORTEZOMIB
     Route: 065
     Dates: start: 20241213, end: 20241213
  37. VELCADE [Suspect]
     Active Substance: BORTEZOMIB
     Route: 065
     Dates: start: 20241220, end: 20241220
  38. VELCADE [Suspect]
     Active Substance: BORTEZOMIB
     Route: 065
     Dates: start: 20241227, end: 20241227
  39. VELCADE [Suspect]
     Active Substance: BORTEZOMIB
     Route: 065
     Dates: start: 20250110, end: 20250110
  40. VELCADE [Suspect]
     Active Substance: BORTEZOMIB
     Route: 065
     Dates: start: 20250117, end: 20250117
  41. VELCADE [Suspect]
     Active Substance: BORTEZOMIB
     Route: 065
     Dates: start: 20250124, end: 20250124
  42. VELCADE [Suspect]
     Active Substance: BORTEZOMIB
     Route: 065
     Dates: start: 20250131, end: 20250131
  43. VELCADE [Suspect]
     Active Substance: BORTEZOMIB
     Route: 065
     Dates: start: 20250207, end: 20250207
  44. VELCADE [Suspect]
     Active Substance: BORTEZOMIB
     Route: 065
     Dates: start: 20250228, end: 20250228
  45. VELCADE [Suspect]
     Active Substance: BORTEZOMIB
     Dosage: THERAPY START DATE: 10-JAN-2025?THERAPY END DATE: 10-JAN-2025
     Route: 065
  46. VELCADE [Suspect]
     Active Substance: BORTEZOMIB
     Dosage: THERAPY START DATE: 17-JAN-2025?THERAPY END DATE: 17-JAN-2025
     Route: 065
  47. VELCADE [Suspect]
     Active Substance: BORTEZOMIB
     Dosage: THERAPY START DATE: 24-JAN-2025?THERAPY END DATE: 24-JAN-2025
     Route: 065
  48. VELCADE [Suspect]
     Active Substance: BORTEZOMIB
     Dosage: THERAPY START DATE: 31-JAN-2025?THERAPY END DATE: 31-JAN-2025
     Route: 065
  49. VELCADE [Suspect]
     Active Substance: BORTEZOMIB
     Dosage: THERAPY START DATE: 07-FEB-2025?THERAPY END DATE: 07-FEB-2025
     Route: 065
  50. VELCADE [Suspect]
     Active Substance: BORTEZOMIB
     Dosage: THERAPY START DATE: 28-FEB-2025?THERAPY END DATE: 28-FEB-2025
     Route: 065
  51. DEXAMETHASONE [Concomitant]
     Active Substance: DEXAMETHASONE
     Indication: Primary amyloidosis
     Route: 065
     Dates: start: 20240920
  52. DEXAMETHASONE [Concomitant]
     Active Substance: DEXAMETHASONE
     Route: 065
     Dates: start: 20250111, end: 20250208
  53. DEXAMETHASONE [Concomitant]
     Active Substance: DEXAMETHASONE
     Dosage: THERAPY START DATE: 20-SEP-2024
     Route: 065
  54. DEXAMETHASONE [Concomitant]
     Active Substance: DEXAMETHASONE
     Dosage: THERAPY START DATE: 11-JAN-2025?THERAPY END DATE: 28-FEB-2025
     Route: 065
  55. CYCLOPHOSPHAMIDE [Concomitant]
     Active Substance: CYCLOPHOSPHAMIDE
     Indication: Primary amyloidosis
     Route: 065
     Dates: start: 20240920
  56. CYCLOPHOSPHAMIDE [Concomitant]
     Active Substance: CYCLOPHOSPHAMIDE
     Dosage: THERAPY START DATE: 17-JAN-2025?THERAPY END DATE: 07-FEB-2025
     Route: 065
     Dates: start: 20250117, end: 20250207

REACTIONS (1)
  - Death [Fatal]
